FAERS Safety Report 15967996 (Version 2)
Quarter: 2019Q2

REPORT INFORMATION
  Report Type: Spontaneous
  Country: PT (occurrence: PT)
  Receive Date: 20190215
  Receipt Date: 20190404
  Transmission Date: 20190711
  Serious: Yes (Disabling)
  Sender: FDA-Public Use
  Company Number: PT-MYLANLABS-2019M1013788

PATIENT
  Sex: Female

DRUGS (1)
  1. ATORVASTATIN [Suspect]
     Active Substance: ATORVASTATIN
     Indication: HYPERCHOLESTEROLAEMIA
     Dosage: 20 MILLIGRAM, QD (HOUVE REDU??O PARA 10 MG/DIA COM LIGEIRA MELHORIA)
     Route: 048
     Dates: end: 20180725

REACTIONS (6)
  - Chest pain [Recovering/Resolving]
  - Haematoma [Recovering/Resolving]
  - Amnesia [Recovering/Resolving]
  - Heart rate increased [Not Recovered/Not Resolved]
  - Rash pruritic [Recovering/Resolving]
  - Muscle fatigue [Recovering/Resolving]

NARRATIVE: CASE EVENT DATE: 201809
